FAERS Safety Report 20559892 (Version 1)
Quarter: 2022Q1

REPORT INFORMATION
  Report Type: Report from Study
  Country: EG (occurrence: EG)
  Receive Date: 20220307
  Receipt Date: 20220307
  Transmission Date: 20220423
  Serious: Yes (Other)
  Sender: FDA-Public Use
  Company Number: EG-NOVARTISPH-NVSC2022EG019138

PATIENT
  Age: 33 Year
  Sex: Male

DRUGS (1)
  1. GILENYA [Suspect]
     Active Substance: FINGOLIMOD HYDROCHLORIDE
     Indication: Multiple sclerosis
     Dosage: 1 DOSAGE FORM, QD
     Route: 048
     Dates: start: 202111, end: 20220119

REACTIONS (5)
  - Platelet count decreased [Unknown]
  - Laboratory test abnormal [Unknown]
  - Hepatic enzyme increased [Unknown]
  - Gastroenteritis [Recovered/Resolved]
  - Amoebiasis [Recovered/Resolved]

NARRATIVE: CASE EVENT DATE: 20211101
